FAERS Safety Report 8455004 (Version 3)
Quarter: 2012Q4

REPORT INFORMATION
  Report Type: Report from Study
  Country: US (occurrence: US)
  Receive Date: 20120313
  Receipt Date: 20120917
  Transmission Date: 20130627
  Serious: Yes (Hospitalization)
  Sender: FDA-Public Use
  Company Number: US-BIOGENIDEC-2012BI007784

PATIENT
  Age: 50 Year
  Sex: Male

DRUGS (9)
  1. TYSABRI [Suspect]
     Indication: MULTIPLE SCLEROSIS
     Route: 042
     Dates: start: 20080122, end: 20110914
  2. CODEINE [Concomitant]
     Indication: PAIN
  3. GLUCOSAMINE [Concomitant]
     Indication: SUPPLEMENTATION THERAPY
  4. METFORMIN [Concomitant]
     Indication: DIABETES MELLITUS
     Dates: start: 2012
  5. JANUVIA [Concomitant]
     Indication: DIABETES MELLITUS
     Dates: start: 20120228, end: 20120301
  6. TESTOSTERONE [Concomitant]
     Indication: SEXUAL DYSFUNCTION
     Dates: start: 201112
  7. WELLBUTRIN [Concomitant]
     Indication: DEPRESSION
     Dates: start: 201109
  8. ZANAFLEX [Concomitant]
     Indication: MUSCLE SPASTICITY
     Route: 048
     Dates: start: 2011
  9. GILENYA [Concomitant]
     Indication: RELAPSING-REMITTING MULTIPLE SCLEROSIS
     Route: 048
     Dates: start: 20111114, end: 20120301

REACTIONS (2)
  - Multiple sclerosis relapse [Recovered/Resolved with Sequelae]
  - Type 2 diabetes mellitus [Recovered/Resolved with Sequelae]
